FAERS Safety Report 5797938-X (Version None)
Quarter: 2008Q3

REPORT INFORMATION
  Report Type: 
  Country: None (occurrence: None)
  Receive Date: 20080702
  Receipt Date: 20080618
  Transmission Date: 20090109
  Serious: Yes (Death, Hospitalization, Other)
  Sender: FDA-Public Use
  Company Number: IT-ELI_LILLY_AND_COMPANY-IT200805005231

PATIENT
  Sex: Male

DRUGS (4)
  1. GEMZAR [Suspect]
     Dosage: 750 MG/M2, DAY 1 AND 8 EVERY 21 DAYS
     Route: 065
     Dates: start: 20080415, end: 20080415
  2. CISPLATIN [Concomitant]
     Dosage: 45 MG/M2, DAY 1 EVERY 21 DAYS
     Dates: start: 20080415
  3. SELOKEN /00376902/ [Concomitant]
     Dosage: 50 MG, UNKNOWN
     Route: 048
  4. RAMIPRIL [Concomitant]
     Dosage: 5 MG, UNKNOWN
     Route: 048

REACTIONS (5)
  - BLOOD BILIRUBIN INCREASED [None]
  - HEPATIC FAILURE [None]
  - HEPATITIS [None]
  - PYREXIA [None]
  - TRANSAMINASES INCREASED [None]
